FAERS Safety Report 7267540-1 (Version None)
Quarter: 2011Q1

REPORT INFORMATION
  Report Type: 
  Country: None (occurrence: None)
  Receive Date: 20110201
  Receipt Date: 20100805
  Transmission Date: 20110831
  Serious: Yes (Hospitalization)
  Sender: FDA-Public Use
  Company Number: US-ABBOTT-10P-163-0661626-00

PATIENT
  Sex: Female
  Weight: 50.848 kg

DRUGS (17)
  1. HUMIRA [Suspect]
     Indication: CROHN'S DISEASE
     Route: 050
     Dates: start: 20091125, end: 20100620
  2. ICE TEA [Concomitant]
     Indication: PRODUCT USED FOR UNKNOWN INDICATION
     Dosage: 1 SERVING DAILY
     Route: 048
     Dates: start: 20091125
  3. TYLENOL EXTRA STRENGTH [Concomitant]
     Indication: ANALGESIC THERAPY
     Route: 048
     Dates: start: 20100114, end: 20100116
  4. FLINTSTONES MULTIPLE VITAMINS [Concomitant]
     Indication: PRODUCT USED FOR UNKNOWN INDICATION
     Dosage: 1 PILL   1 PILL QD
     Route: 048
     Dates: start: 20100206, end: 20100624
  5. PREDNISONE [Concomitant]
     Route: 048
     Dates: start: 20100403, end: 20100628
  6. PREDNISONE [Concomitant]
     Indication: CROHN'S DISEASE
     Route: 048
     Dates: start: 20100115, end: 20100226
  7. TYLENOL EXTRA STRENGTH [Concomitant]
     Indication: HEADACHE
     Route: 048
     Dates: start: 20100205, end: 20100623
  8. PREVACID [Concomitant]
     Indication: GASTROOESOPHAGEAL REFLUX DISEASE
     Route: 048
     Dates: start: 20091125, end: 20100205
  9. PREDNISONE [Concomitant]
     Route: 048
     Dates: start: 20100227, end: 20100402
  10. H1N1 2009 INFLUENZA VACCINE - NOS [Concomitant]
     Indication: H1N1 INFLUENZA
     Dosage: 1 SHOT
     Route: 050
     Dates: start: 20091130, end: 20091130
  11. ROLAIDS [Concomitant]
     Indication: DYSPEPSIA
  12. PRENATAL VITAMINS [Concomitant]
     Indication: PRODUCT USED FOR UNKNOWN INDICATION
     Dosage: 1 PILL QD
     Route: 048
     Dates: start: 20091125, end: 20100205
  13. AUGMENTIN '125' [Concomitant]
     Indication: CROHN'S DISEASE
     Route: 048
     Dates: start: 20100114, end: 20100122
  14. IV FLUIDS NOS [Concomitant]
     Indication: MEDICAL DIET
     Route: 042
     Dates: start: 20100628
  15. POTASSIUM [Concomitant]
     Indication: VITAMIN SUPPLEMENTATION
     Dosage: 2 PILLS TOTAL
     Route: 048
     Dates: start: 20100625, end: 20100625
  16. VALTREX [Concomitant]
     Indication: HERPES VIRUS INFECTION
     Route: 048
     Dates: start: 20091125, end: 20100119
  17. ROLAIDS [Concomitant]
     Indication: FLATULENCE
     Dosage: 1 PILL PRN
     Route: 048
     Dates: start: 20091125, end: 20100129

REACTIONS (1)
  - CROHN'S DISEASE [None]
